FAERS Safety Report 11716461 (Version 1)
Quarter: 2015Q4

REPORT INFORMATION
  Report Type: Report from Study
  Country: US (occurrence: US)
  Receive Date: 20151109
  Receipt Date: 20151109
  Transmission Date: 20160304
  Serious: Yes (Hospitalization)
  Sender: FDA-Public Use
  Company Number: US-BAXALTA-2015BLT002560

PATIENT
  Age: 79 Year
  Sex: Female

DRUGS (1)
  1. ARALAST NP [Suspect]
     Active Substance: .ALPHA.1-PROTEINASE INHIBITOR HUMAN
     Indication: ALPHA-1 ANTI-TRYPSIN DEFICIENCY
     Dosage: UNK UNK, 1X A WEEK
     Route: 042
     Dates: start: 2004

REACTIONS (5)
  - Lip injury [Not Recovered/Not Resolved]
  - Fall [Not Recovered/Not Resolved]
  - Drug dose omission [Unknown]
  - Facial bones fracture [Not Recovered/Not Resolved]
  - Eye contusion [Not Recovered/Not Resolved]

NARRATIVE: CASE EVENT DATE: 201510
